FAERS Safety Report 23219506 (Version 9)
Quarter: 2024Q4

REPORT INFORMATION
  Report Type: Spontaneous
  Country: CA (occurrence: CA)
  Receive Date: 20231122
  Receipt Date: 20241212
  Transmission Date: 20250115
  Serious: Yes (Hospitalization, Other)
  Sender: PFIZER
  Company Number: CA-PFIZER INC-202300130388

PATIENT
  Age: 70 Year
  Sex: Female

DRUGS (30)
  1. RUXIENCE [Suspect]
     Active Substance: RITUXIMAB-PVVR
     Indication: Rheumatoid arthritis
     Dosage: 1000 MG, DAY 1 AND 15
     Route: 042
     Dates: start: 20220329, end: 20220411
  2. RUXIENCE [Suspect]
     Active Substance: RITUXIMAB-PVVR
     Dosage: 1000 MG, DAY 1 AND 15
     Route: 042
     Dates: start: 20221101, end: 20221116
  3. RUXIENCE [Suspect]
     Active Substance: RITUXIMAB-PVVR
     Dosage: 500 MG, DAY 1 AND 15
     Route: 042
     Dates: start: 20230516, end: 20230516
  4. RUXIENCE [Suspect]
     Active Substance: RITUXIMAB-PVVR
     Dosage: 500 MG, DAY 1 AND 15
     Route: 042
     Dates: start: 20230516, end: 20230516
  5. RUXIENCE [Suspect]
     Active Substance: RITUXIMAB-PVVR
     Dosage: 500 MG, DAY 1 AND 15
     Route: 042
     Dates: start: 20230516, end: 20230616
  6. RUXIENCE [Suspect]
     Active Substance: RITUXIMAB-PVVR
     Dosage: 500 MG AFTER 4 WEEKS
     Route: 042
     Dates: start: 20230616
  7. RUXIENCE [Suspect]
     Active Substance: RITUXIMAB-PVVR
     Dosage: 500 MG, DAY 1 AND 15
     Route: 042
     Dates: start: 20240620, end: 20240620
  8. ASPIRIN [Concomitant]
     Active Substance: ASPIRIN
     Dosage: 1 DF, DOSAGE INFO IS NOT AVAILABLE
     Route: 065
  9. AMITRIPTYLINE [Concomitant]
     Active Substance: AMITRIPTYLINE
     Dosage: 20 MG, DAILY, AT BEDTIME
     Route: 065
  10. AMITRIPTYLINE [Concomitant]
     Active Substance: AMITRIPTYLINE
     Dosage: 1 DF, DOSAGE INFO IS NOT AVAILABLE
     Route: 065
  11. BACLOFEN [Concomitant]
     Active Substance: BACLOFEN
     Dosage: 10 MG, DAILY, AT BEDTIME
  12. BACLOFEN [Concomitant]
     Active Substance: BACLOFEN
     Dosage: 1 DF
  13. BISOPROLOL [Concomitant]
     Active Substance: BISOPROLOL
     Dosage: 1 DF, DOSAGE INFO IS NOT AVAILABLE
     Route: 065
  14. CALCIUM [Concomitant]
     Active Substance: CALCIUM
     Dosage: 500 MG, DAILY
     Route: 065
  15. CALCIUM [Concomitant]
     Active Substance: CALCIUM
     Dosage: 1 DF, DOSAGE INFO IS NOT AVAILABLE
     Route: 065
  16. DIPHENHYDRAMINE [Concomitant]
     Active Substance: DIPHENHYDRAMINE
     Indication: Premedication
     Dosage: UNK
     Dates: start: 20230616, end: 20230616
  17. METHYLPREDNISOLONE [Concomitant]
     Active Substance: METHYLPREDNISOLONE
     Indication: Premedication
     Dosage: UNK
     Dates: start: 20230616, end: 20230616
  18. PANTOPRAZOLE [Concomitant]
     Active Substance: PANTOPRAZOLE
     Dosage: 1 DF, DOSAGE INFO IS NOT AVAILABLE
     Route: 065
  19. RISEDRONATE SODIUM [Concomitant]
     Active Substance: RISEDRONATE SODIUM
     Dosage: 5 MG, DAILY, AT BEDTIME
     Route: 065
  20. RISEDRONATE SODIUM [Concomitant]
     Active Substance: RISEDRONATE SODIUM
     Dosage: 1 DF, DOSAGE INFO IS NOT AVAIALBLE
     Route: 065
  21. ROSUVASTATIN [Concomitant]
     Active Substance: ROSUVASTATIN
     Dosage: 5 MG, DAILY, AT BEDTIME
     Route: 065
  22. ROSUVASTATIN [Concomitant]
     Active Substance: ROSUVASTATIN
     Dosage: 1 DF, DOSAGE INFO IS NOT AVAILABLE
     Route: 065
  23. TYLENOL WITH CODEINE [Concomitant]
     Active Substance: ACETAMINOPHEN\CODEINE PHOSPHATE
     Dosage: 1 DF, DOSAGE INFO IS NOT AVAILABLE
     Route: 065
  24. VALACYCLOVIR [Concomitant]
     Active Substance: VALACYCLOVIR HYDROCHLORIDE
     Dosage: 1 DF
  25. VITAMIN D [Concomitant]
     Active Substance: VITAMIN D NOS
     Dosage: 200 IU, DAILY
     Route: 065
  26. VITAMIN D [Concomitant]
     Active Substance: VITAMIN D NOS
     Dosage: 1 DF, DOSAGE INFO IS NOT AVAILABLE
     Route: 065
  27. AMLODIPINE [Concomitant]
     Active Substance: AMLODIPINE BESYLATE
     Dosage: 2.5 MG, DAILY
  28. FERROUS GLUCONATE [Concomitant]
     Active Substance: FERROUS GLUCONATE
     Dosage: 300 MG, DAILY
  29. GABAPENTIN [Concomitant]
     Active Substance: GABAPENTIN
     Dosage: 100 MG, 2X/DAY
  30. POTASSIUM [Concomitant]
     Active Substance: POTASSIUM
     Dosage: UNK, DAILY

REACTIONS (9)
  - COVID-19 [Not Recovered/Not Resolved]
  - Spinal deformity [Recovering/Resolving]
  - Post procedural infection [Unknown]
  - Poor venous access [Recovered/Resolved]
  - Asthenia [Unknown]
  - Off label use [Unknown]
  - Off label use [Unknown]
  - Intentional product use issue [Unknown]
  - Off label use [Unknown]

NARRATIVE: CASE EVENT DATE: 20230501
